FAERS Safety Report 7792168-4 (Version None)
Quarter: 2011Q4

REPORT INFORMATION
  Report Type: 
  Country: None (occurrence: None)
  Receive Date: 20111003
  Receipt Date: 20111003
  Transmission Date: 20120403
  Serious: No
  Sender: FDA-Public Use
  Company Number: None

PATIENT
  Age: 52 Year
  Sex: Male
  Weight: 98.883 kg

DRUGS (1)
  1. CEPHALEXIN [Suspect]
     Indication: LOCALISED INFECTION
     Dosage: 1 CAPSULE
     Route: 048
     Dates: start: 20110923, end: 20110925

REACTIONS (2)
  - RASH PRURITIC [None]
  - INSOMNIA [None]
